FAERS Safety Report 4986932-4 (Version None)
Quarter: 2006Q2

REPORT INFORMATION
  Report Type: 
  Country: None (occurrence: None)
  Receive Date: 20060501
  Receipt Date: 20060224
  Transmission Date: 20061013
  Serious: Yes (Hospitalization)
  Sender: FDA-Public Use
  Company Number: 2006AP01004

PATIENT
  Age: 25185 Day
  Sex: Female

DRUGS (47)
  1. IRESSA [Suspect]
     Indication: NON-SMALL CELL LUNG CANCER
     Route: 048
     Dates: start: 20050321, end: 20060224
  2. BUDESONIDE [Concomitant]
     Indication: DYSPNOEA
     Route: 055
     Dates: start: 20020101
  3. FORMOTEROL [Concomitant]
     Indication: DYSPNOEA
     Route: 055
     Dates: start: 20020101
  4. PULMICORT [Concomitant]
     Indication: DYSPNOEA
     Route: 055
     Dates: start: 20020101
  5. SEREVENT [Concomitant]
     Indication: DYSPNOEA
     Route: 055
     Dates: start: 20020101, end: 20050324
  6. BRICANYL [Concomitant]
     Indication: DYSPNOEA
     Route: 055
     Dates: start: 20020101
  7. COCCILAM ETYTON [Concomitant]
     Indication: COUGH
     Route: 048
  8. ACETYLSALICYLIC SYRUP (ASA) [Concomitant]
     Indication: NASOPHARYNGITIS
     Route: 048
     Dates: start: 20050326
  9. VISIBLIN [Concomitant]
     Indication: IRRITABLE BOWEL SYNDROME
     Route: 048
     Dates: start: 20050401
  10. BRIMHEXIN [Concomitant]
     Indication: NASOPHARYNGITIS
     Route: 048
     Dates: start: 20050304
  11. BETROVAT [Concomitant]
     Indication: ACNE
     Route: 003
     Dates: start: 20050401
  12. ALVEDON [Concomitant]
     Indication: NASOPHARYNGITIS
     Route: 048
     Dates: start: 20050801
  13. TRIMETOPRIM [Concomitant]
     Indication: URINARY TRACT INFECTION
     Route: 048
     Dates: start: 20050503, end: 20050509
  14. TRIMETOPRIM [Concomitant]
     Indication: INFECTION PROPHYLAXIS
     Route: 048
     Dates: start: 20050503, end: 20050509
  15. TRIMETOPRIM [Concomitant]
     Route: 048
     Dates: start: 20050603, end: 20050610
  16. TRIMETOPRIM [Concomitant]
     Route: 048
     Dates: start: 20050603, end: 20050610
  17. TRIMETOPRIM [Concomitant]
     Route: 048
     Dates: start: 20050826, end: 20050903
  18. TRIMETOPRIM [Concomitant]
     Route: 048
     Dates: start: 20050826, end: 20050903
  19. TRIMETOPRIM [Concomitant]
     Route: 048
     Dates: start: 20050930, end: 20051009
  20. TRIMETOPRIM [Concomitant]
     Route: 048
     Dates: start: 20050930, end: 20051009
  21. TRIMETOPRIM [Concomitant]
     Route: 048
     Dates: start: 20051010, end: 20060126
  22. TRIMETOPRIM [Concomitant]
     Route: 048
     Dates: start: 20051010, end: 20060126
  23. PAPAVERIN [Concomitant]
     Indication: NAUSEA
     Route: 048
     Dates: start: 20050416
  24. FUROSEMIDE [Concomitant]
     Indication: FLUID RETENTION
     Route: 048
     Dates: start: 20050514
  25. PANODIL 500MG [Concomitant]
     Indication: HEADACHE
     Route: 048
     Dates: start: 20050615
  26. FENURIL [Concomitant]
     Indication: DRY SKIN
     Route: 003
     Dates: start: 20050515
  27. SELEXID [Concomitant]
     Indication: URINARY TRACT INFECTION
     Route: 048
     Dates: start: 20050621, end: 20050705
  28. SELEXID [Concomitant]
     Route: 048
     Dates: start: 20060126, end: 20060208
  29. TIPAROL [Concomitant]
     Indication: ARTHRALGIA
     Route: 048
     Dates: start: 20050621
  30. TIPAROL [Concomitant]
     Indication: ABDOMINAL PAIN
     Route: 048
     Dates: start: 20050621
  31. OVESTERIN VAGINAL PREPARATION [Concomitant]
     Indication: HORMONE REPLACEMENT THERAPY
     Route: 003
     Dates: start: 20020101
  32. VAGITEM [Concomitant]
     Indication: HORMONE REPLACEMENT THERAPY
     Route: 067
     Dates: start: 20051015
  33. BETAPRED [Concomitant]
     Indication: METASTASES TO CENTRAL NERVOUS SYSTEM
     Route: 048
     Dates: start: 20051209, end: 20060108
  34. BETAPRED [Concomitant]
     Route: 048
     Dates: start: 20060109, end: 20060112
  35. BETAPRED [Concomitant]
     Route: 048
     Dates: start: 20060109, end: 20060112
  36. BETAPRED [Concomitant]
     Route: 048
     Dates: start: 20060113, end: 20060201
  37. BETAPRED [Concomitant]
     Route: 048
     Dates: start: 20060202, end: 20060219
  38. BETAPRED [Concomitant]
     Route: 048
     Dates: start: 20060220
  39. LANSOPRAZOLE [Concomitant]
     Indication: PROPHYLAXIS
     Route: 048
     Dates: start: 20051209, end: 20051223
  40. OMEPRAZOL [Concomitant]
     Indication: PROPHYLAXIS
     Route: 048
     Dates: start: 20051224
  41. DIFLUCAN [Concomitant]
     Indication: ORAL FUNGAL INFECTION
     Route: 048
     Dates: start: 20060111, end: 20060117
  42. DIFLUCAN [Concomitant]
     Route: 048
     Dates: start: 20060222
  43. FURIX [Concomitant]
     Indication: OEDEMA
     Route: 048
     Dates: start: 20060201
  44. FURIX [Concomitant]
     Route: 042
     Dates: start: 20060224
  45. SPIRONOLACTONE [Concomitant]
     Indication: OEDEMA
     Route: 048
     Dates: start: 20060201
  46. INFLUENZA A VACCINATION [Concomitant]
     Indication: ANTIVIRAL PROPHYLAXIS
     Route: 030
     Dates: start: 20051024, end: 20051024
  47. FUNGIZONE [Concomitant]
     Indication: ORAL FUNGAL INFECTION
     Route: 048
     Dates: start: 20060209, end: 20060222

REACTIONS (3)
  - GENERAL PHYSICAL HEALTH DETERIORATION [None]
  - LUNG INFILTRATION [None]
  - URINARY TRACT INFECTION [None]
